FAERS Safety Report 10340636 (Version 3)
Quarter: 2014Q4

REPORT INFORMATION
  Report Type: Spontaneous
  Country: US (occurrence: None)
  Receive Date: 20140722
  Receipt Date: 20141016
  Transmission Date: 20150528
  Serious: Yes (Death)
  Sender: FDA-Public Use
  Company Number: UNT-2014-003981

PATIENT
  Age: 60 Year
  Sex: Female

DRUGS (3)
  1. REMODULIN [Suspect]
     Active Substance: TREPROSTINIL
     Indication: PULMONARY HYPERTENSION
     Dosage: 0.030 UG/KG, CONTINUING, SUBCUTANEOUS
     Route: 058
     Dates: start: 20140115
  2. LETAIRIS [Concomitant]
     Active Substance: AMBRISENTAN
  3. REVATIO (SILDENAFIL CITRATE) [Concomitant]

REACTIONS (4)
  - Death [None]
  - Oesophageal varices haemorrhage [None]
  - Arrhythmia [None]
  - Infection [None]

NARRATIVE: CASE EVENT DATE: 201407
